FAERS Safety Report 24986805 (Version 1)
Quarter: 2025Q1

REPORT INFORMATION
  Report Type: Report from Study
  Country: US (occurrence: None)
  Receive Date: 20250219
  Receipt Date: 20250219
  Transmission Date: 20250409
  Serious: No
  Sender: ALEXION PHARMACEUTICALS
  Company Number: US-AstraZeneca-2014SE52378

PATIENT
  Age: 71 Year
  Weight: 54.431 kg

DRUGS (5)
  1. NEXIUM [Suspect]
     Active Substance: ESOMEPRAZOLE MAGNESIUM
     Indication: Gastric ulcer
     Dosage: 40 MILLIGRAM, QD
  2. NEXIUM [Suspect]
     Active Substance: ESOMEPRAZOLE MAGNESIUM
     Indication: Gastric ulcer
  3. MORPHINE [Concomitant]
     Active Substance: MORPHINE
     Indication: Pain
  4. FLEXERIL [Concomitant]
     Active Substance: CYCLOBENZAPRINE HYDROCHLORIDE
     Indication: Muscle relaxant therapy
  5. TRAMADOL [Concomitant]
     Active Substance: TRAMADOL
     Indication: Adjuvant therapy

REACTIONS (3)
  - Pain [Not Recovered/Not Resolved]
  - Hypoacusis [Not Recovered/Not Resolved]
  - Product dose omission issue [Unknown]
